FAERS Safety Report 6472656-3 (Version None)
Quarter: 2009Q4

REPORT INFORMATION
  Report Type: 
  Country: None (occurrence: None)
  Receive Date: 20091201
  Receipt Date: 20091116
  Transmission Date: 20100525
  Serious: Yes (Hospitalization, Other)
  Sender: FDA-Public Use
  Company Number: 2009SP036868

PATIENT
  Age: 60 Year
  Sex: Male

DRUGS (9)
  1. MIRTAZAPINE [Suspect]
     Indication: MENTAL DISORDER
     Dosage: 30 MG;QPM;PO
     Route: 048
     Dates: end: 20090830
  2. ABILIFY [Suspect]
     Indication: MENTAL DISORDER
     Dosage: 25 MG;QD;PO ; 20 MG;QD;PO
     Route: 048
     Dates: end: 20090831
  3. ABILIFY [Suspect]
     Indication: MENTAL DISORDER
     Dosage: 25 MG;QD;PO ; 20 MG;QD;PO
     Route: 048
     Dates: start: 20090805
  4. MEPRONIZINE (MEPRONIZINE /00789201/) [Suspect]
     Indication: MENTAL DISORDER
     Dosage: 1 DF;QPM;PO
     Route: 048
     Dates: start: 20090806, end: 20090830
  5. LORAZEPAM [Suspect]
     Indication: MENTAL DISORDER
     Dosage: 6.25 MG;QD;PO ; 3.75 MG;QD;PO
     Route: 048
     Dates: end: 20090830
  6. LORAZEPAM [Suspect]
     Indication: MENTAL DISORDER
     Dosage: 6.25 MG;QD;PO ; 3.75 MG;QD;PO
     Route: 048
     Dates: start: 20090802
  7. LASILIX [Concomitant]
  8. CARDENSIEL [Concomitant]
  9. IXPRIM [Concomitant]

REACTIONS (8)
  - ASTHENIA [None]
  - CEREBRAL ARTERY OCCLUSION [None]
  - COMA [None]
  - DRUG INTERACTION [None]
  - EXTRAPYRAMIDAL DISORDER [None]
  - ISCHAEMIC STROKE [None]
  - LOSS OF CONSCIOUSNESS [None]
  - OVERDOSE [None]
